FAERS Safety Report 21975690 (Version 1)
Quarter: 2023Q1

REPORT INFORMATION
  Report Type: Spontaneous
  Country: DE (occurrence: DE)
  Receive Date: 20230210
  Receipt Date: 20230210
  Transmission Date: 20230418
  Serious: Yes (Other)
  Sender: FDA-Public Use
  Company Number: DE-PROCTER+GAMBLE-PH22013561

PATIENT
  Age: 80 Year
  Sex: Female

DRUGS (7)
  1. BISOPROLOL FUMARATE [Suspect]
     Active Substance: BISOPROLOL FUMARATE
     Indication: Product used for unknown indication
     Dosage: 2 DOSAGE FORM, ONCE A DAY (1-0-1 TABLETS (MAINTENANCE MEDICATION)
     Route: 048
     Dates: start: 20221230
  2. ZOPICLONE [Suspect]
     Active Substance: ZOPICLONE
     Indication: Product used for unknown indication
     Dosage: 20 DOSAGE FORM, ONCE A DAY(20 TABLET, 1 ONLY (MAINTENANCE MEDICATION)
     Route: 048
     Dates: start: 20221230
  3. DULOXETINE [Suspect]
     Active Substance: DULOXETINE
     Indication: Product used for unknown indication
     Dosage: 20 DOSAGE FORM, ONCE A DAY (20 TABLET, 1 ONLY (MAINTENANCE MEDICATION)
     Route: 048
     Dates: start: 20221230
  4. DULOXETINE [Suspect]
     Active Substance: DULOXETINE
     Indication: Product used for unknown indication
     Dosage: 20 DOSAGE FORM, ONCE A DAY (20 TABLET, 1 ONLY (MAINTENANCE MEDICATION)
     Route: 048
     Dates: start: 20221230
  5. FOLIC ACID [Suspect]
     Active Substance: FOLIC ACID
     Indication: Product used for unknown indication
     Dosage: UNK UNK, ONCE A DAY (400 ?G, UNKNOWN QUANTITY OF TABLETS, 1 ONLY (MAINTENANCE MEDICATION)
     Route: 048
     Dates: start: 20221230
  6. HERBALS [Suspect]
     Active Substance: HERBALS
     Indication: Product used for unknown indication
     Dosage: 20 DOSAGE FORM, ONCE A DAY(20 PILLS, 1 ONLY (MAINTENANCE MEDICATION)
     Route: 048
     Dates: start: 20221230
  7. PIPAMPERONE [Suspect]
     Active Substance: PIPAMPERONE
     Indication: Product used for unknown indication
     Dosage: 20 DOSAGE FORM, ONCE A DAY(20 X 20MG TABLETS, 1 ONLY (MAINTENANCE MEDICATION)
     Route: 048
     Dates: start: 20221230

REACTIONS (4)
  - Hypoxia [Unknown]
  - Suicide attempt [Unknown]
  - Somnolence [Unknown]
  - Intentional overdose [Unknown]

NARRATIVE: CASE EVENT DATE: 20221230
